FAERS Safety Report 6559313-X (Version None)
Quarter: 2010Q1

REPORT INFORMATION
  Report Type: 
  Country: None (occurrence: None)
  Receive Date: 20100129
  Receipt Date: 20090831
  Transmission Date: 20100710
  Serious: No
  Sender: FDA-Public Use
  Company Number: US-ABBOTT-09P-163-0594293-00

PATIENT
  Sex: Female
  Weight: 67.646 kg

DRUGS (2)
  1. HUMIRA [Suspect]
     Indication: PSORIASIS
     Dates: start: 20090112
  2. HUMIRA [Suspect]
     Indication: PSORIATIC ARTHROPATHY
     Dates: start: 20081017, end: 20081030

REACTIONS (8)
  - ARTHRALGIA [None]
  - DRUG INEFFECTIVE [None]
  - DRY SKIN [None]
  - RASH [None]
  - SKIN FISSURES [None]
  - SKIN LACERATION [None]
  - STRESS [None]
  - UPPER RESPIRATORY TRACT INFECTION [None]
